FAERS Safety Report 9929945 (Version 1)
Quarter: 2014Q1

REPORT INFORMATION
  Report Type: Spontaneous
  Country: IT (occurrence: IT)
  Receive Date: 20140227
  Receipt Date: 20140227
  Transmission Date: 20141002
  Serious: Yes (Life-Threatening)
  Sender: FDA-Public Use
  Company Number: PHHY2014IT022093

PATIENT
  Age: 25 Year
  Sex: Female

DRUGS (1)
  1. ACETYLSALICYLIC ACID [Suspect]
     Dosage: 500 MG, ONCE/SINGLE
     Route: 048
     Dates: start: 20131209, end: 20131209

REACTIONS (1)
  - Anaphylactic shock [Recovered/Resolved]
